FAERS Safety Report 8525193-6 (Version None)
Quarter: 2012Q3

REPORT INFORMATION
  Report Type: 
  Country: None (occurrence: None)
  Receive Date: 20120720
  Receipt Date: 20120712
  Transmission Date: 20120928
  Serious: Yes (Hospitalization)
  Sender: FDA-Public Use
  Company Number: PHEH2012US011696

PATIENT
  Sex: Female

DRUGS (4)
  1. CLONAZEPAM [Concomitant]
     Dosage: 0.05 MG, UNK
  2. DIOVAN [Suspect]
     Dosage: 80 MG, UNK
  3. LOSARTAN POTASSIUM [Suspect]
  4. COZAAR [Suspect]
     Dosage: 50 MG, UNK

REACTIONS (3)
  - DIZZINESS [None]
  - DRUG INTOLERANCE [None]
  - HEART RATE IRREGULAR [None]
